FAERS Safety Report 16375372 (Version 1)
Quarter: 2019Q2

REPORT INFORMATION
  Report Type: Spontaneous
  Country: TR (occurrence: TR)
  Receive Date: 20190531
  Receipt Date: 20190531
  Transmission Date: 20190711
  Serious: Yes (Hospitalization, Other)
  Sender: FDA-Public Use
  Company Number: TR-ASTELLAS-2019US022961

PATIENT
  Age: 58 Year
  Sex: Female

DRUGS (3)
  1. URIKOLIZ [Concomitant]
     Active Substance: ALLOPURINOL
     Indication: PRODUCT USED FOR UNKNOWN INDICATION
     Route: 065
  2. TACROLIMUS. [Suspect]
     Active Substance: TACROLIMUS
     Indication: RENAL TRANSPLANT
     Route: 065
  3. SULFAMETHOXAZOLE AND TRIMETHOPRIM [Concomitant]
     Active Substance: SULFAMETHOXAZOLE\TRIMETHOPRIM
     Indication: PRODUCT USED FOR UNKNOWN INDICATION
     Dosage: 400/80 MG, ONCE DAILY
     Route: 065

REACTIONS (6)
  - Aspergillus infection [Unknown]
  - Pulmonary embolism [Unknown]
  - Haemoptysis [Unknown]
  - Candida infection [Unknown]
  - Tuberculosis [Unknown]
  - Cytomegalovirus infection [Unknown]
